FAERS Safety Report 20898560 (Version 4)
Quarter: 2022Q3

REPORT INFORMATION
  Report Type: Spontaneous
  Country: TW (occurrence: TW)
  Receive Date: 20220601
  Receipt Date: 20220721
  Transmission Date: 20221026
  Serious: Yes (Hospitalization, Other)
  Sender: FDA-Public Use
  Company Number: TW-MACLEODS PHARMACEUTICALS US LTD-MAC2022035793

PATIENT

DRUGS (7)
  1. LIDOCAINE [Suspect]
     Active Substance: LIDOCAINE
     Indication: Nasal decongestion therapy
     Dosage: UNK (LOCAL SPRAY)
     Route: 065
     Dates: start: 20190920
  2. LIDOCAINE [Suspect]
     Active Substance: LIDOCAINE
     Indication: Local anaesthesia
     Dosage: 2 %, (5-10 ML) INJECTION INTO THE LARYNX
     Route: 065
     Dates: start: 20190920
  3. LIDOCAINE [Suspect]
     Active Substance: LIDOCAINE
     Dosage: 10 MILLILITER
  4. LIDOCAINE [Suspect]
     Active Substance: LIDOCAINE
     Dosage: 5 MILLILITER
     Route: 045
  5. LIDOCAINE [Suspect]
     Active Substance: LIDOCAINE
     Dosage: UNK
  6. EPINEPHRINE [Concomitant]
     Active Substance: EPINEPHRINE
     Indication: Nasal decongestion therapy
     Dosage: UNK, NASAL USE
     Route: 045
  7. DEXAMETHASONE [Concomitant]
     Active Substance: DEXAMETHASONE
     Indication: Vocal cord cyst
     Dosage: 0.6 MILLILITER
     Route: 065

REACTIONS (2)
  - Quadriparesis [Recovered/Resolved]
  - Local anaesthetic systemic toxicity [Recovered/Resolved]

NARRATIVE: CASE EVENT DATE: 20190920
